FAERS Safety Report 6454655-0 (Version None)
Quarter: 2009Q4

REPORT INFORMATION
  Report Type: 
  Country: None (occurrence: None)
  Receive Date: 20091118
  Receipt Date: 20091106
  Transmission Date: 20100525
  Serious: No
  Sender: FDA-Public Use
  Company Number: PI-04351

PATIENT
  Sex: Male

DRUGS (1)
  1. CHLORAPREP SINGLE SWABSTICK [Suspect]
     Indication: PREOPERATIVE CARE
     Dosage: 1.75ML; ONCE; TOPICAL
     Route: 061
     Dates: start: 20091020, end: 20091022

REACTIONS (4)
  - APPLICATION SITE BURN [None]
  - APPLICATION SITE DISCHARGE [None]
  - APPLICATION SITE INFECTION [None]
  - CULTURE WOUND POSITIVE [None]
